FAERS Safety Report 6504397-8 (Version None)
Quarter: 2009Q4

REPORT INFORMATION
  Report Type: 
  Country: None (occurrence: None)
  Receive Date: 20091217
  Receipt Date: 20091210
  Transmission Date: 20100525
  Serious: Yes (Hospitalization)
  Sender: FDA-Public Use
  Company Number: US-AMGEN-KDC379595

PATIENT
  Sex: Female
  Weight: 62.6 kg

DRUGS (9)
  1. PANITUMUMAB [Suspect]
     Indication: COLORECTAL CANCER
     Route: 042
     Dates: start: 20091014
  2. LEUCOVORIN CALCIUM [Concomitant]
     Route: 042
     Dates: start: 20081024
  3. FLUOROURACIL [Concomitant]
     Route: 042
     Dates: start: 20081024, end: 20081205
  4. FLUOROURACIL [Concomitant]
     Route: 042
     Dates: start: 20081229, end: 20090206
  5. FLUOROURACIL [Concomitant]
     Route: 042
     Dates: start: 20090306, end: 20090327
  6. FLUOROURACIL [Concomitant]
     Route: 042
     Dates: start: 20091014
  7. IRINOTECAN HCL [Concomitant]
     Route: 042
     Dates: start: 20091014
  8. DECADRON [Concomitant]
     Dates: start: 20081024
  9. ALOXI [Concomitant]
     Dates: start: 20081024

REACTIONS (2)
  - DIARRHOEA [None]
  - WEIGHT DECREASED [None]
